FAERS Safety Report 18867938 (Version 1)
Quarter: 2021Q1

REPORT INFORMATION
  Report Type: Spontaneous
  Country: US (occurrence: US)
  Receive Date: 20210209
  Receipt Date: 20210209
  Transmission Date: 20210420
  Serious: Yes (Other)
  Sender: FDA-Public Use
  Company Number: US-MYLANLABS-2021M1008110

PATIENT
  Age: 56 Year
  Sex: Female

DRUGS (2)
  1. PREDNISONE. [Suspect]
     Active Substance: PREDNISONE
     Indication: FIBROUS DYSPLASIA OF BONE
     Dosage: UNK
     Route: 048
  2. PREDNISONE. [Suspect]
     Active Substance: PREDNISONE
     Indication: FIBROUS DYSPLASIA OF BONE
     Dosage: UNK
     Route: 042

REACTIONS (1)
  - Drug ineffective [Unknown]
